FAERS Safety Report 4909911-1 (Version None)
Quarter: 2006Q1

REPORT INFORMATION
  Report Type: 
  Country: None (occurrence: None)
  Receive Date: 20060208
  Receipt Date: 20060127
  Transmission Date: 20060701
  Serious: Yes (Hospitalization)
  Sender: FDA-Public Use
  Company Number: 200616111

PATIENT
  Age: 72 Year
  Sex: Male
  Weight: 72 kg

DRUGS (7)
  1. AMLODIPINE [Suspect]
     Indication: ESSENTIAL HYPERTENSION
     Dosage: 5 MG (5 MG, DAILY), ORAL
     Route: 048
  2. AMIODARONE HCL [Suspect]
     Indication: VENTRICULAR TACHYCARDIA
     Dosage: (200 MG, 5 IN 1 WK), ORAL
     Route: 048
     Dates: end: 20041014
  3. NATISPRAY (GLYCERYL TRINITRATE) [Concomitant]
  4. ASPIRIN [Suspect]
     Indication: MYOCARDIAL ISCHAEMIA
     Dosage: 75 MG (75 MG, DAILY), ORAL
     Route: 048
  5. SECTRAL [Suspect]
     Indication: ESSENTIAL HYPERTENSION
     Dosage: 400 MG (200 MG,2 IN 1 D), ORAL
     Route: 048
  6. IKOREL (NICORANDIL) [Suspect]
     Indication: MYOCARDIAL ISCHAEMIA
     Dosage: 20 MG (10 MG, 2 IN 1 D), ORAL
     Route: 048
  7. PRAVASTATIN [Suspect]
     Indication: HYPERLIPIDAEMIA
     Dosage: 20 MG (20 MG, DAILY), ORAL
     Route: 048

REACTIONS (9)
  - CHEST PAIN [None]
  - CHILLS [None]
  - HYPOXIA [None]
  - INFLAMMATION [None]
  - ISCHAEMIA [None]
  - LEUKOCYTOSIS [None]
  - LUNG DISORDER [None]
  - PYREXIA [None]
  - RESPIRATORY DISORDER [None]
